FAERS Safety Report 10276036 (Version 1)
Quarter: 2014Q3

REPORT INFORMATION
  Report Type: Spontaneous
  Country: US (occurrence: US)
  Receive Date: 20140703
  Receipt Date: 20140703
  Transmission Date: 20150326
  Serious: Yes (Life-Threatening, Hospitalization)
  Sender: FDA-Public Use
  Company Number: US-ASTRAZENECA-2014SE47610

PATIENT
  Age: 23 Year
  Sex: Female
  Weight: 63 kg

DRUGS (5)
  1. SEROQUEL [Suspect]
     Active Substance: QUETIAPINE FUMARATE
     Dosage: UNKNOWN AMOUNT OF 300 MG TABLETS
     Route: 048
     Dates: start: 20140603, end: 20140603
  2. TRAZODONE [Concomitant]
     Active Substance: TRAZODONE HYDROCHLORIDE
  3. NEURONTIN [Concomitant]
     Active Substance: GABAPENTIN
  4. PAXIL [Concomitant]
     Active Substance: PAROXETINE HYDROCHLORIDE
  5. SEROQUEL [Suspect]
     Active Substance: QUETIAPINE FUMARATE
     Route: 048

REACTIONS (6)
  - Panic disorder [Unknown]
  - Overdose [Unknown]
  - Borderline personality disorder [Unknown]
  - Coma [Unknown]
  - Drug screen positive [Unknown]
  - Convulsion [Unknown]

NARRATIVE: CASE EVENT DATE: 20140603
